FAERS Safety Report 10282712 (Version 6)
Quarter: 2015Q1

REPORT INFORMATION
  Report Type: Spontaneous
  Country: GB (occurrence: GB)
  Receive Date: 20140708
  Receipt Date: 20150227
  Transmission Date: 20150720
  Serious: Yes (Other)
  Sender: FDA-Public Use
  Company Number: GB-ROCHE-1430968

PATIENT
  Sex: Female

DRUGS (2)
  1. HERCEPTIN [Suspect]
     Active Substance: TRASTUZUMAB
     Indication: PRODUCT USED FOR UNKNOWN INDICATION
     Route: 058
  2. HERCEPTIN [Suspect]
     Active Substance: TRASTUZUMAB
     Route: 058

REACTIONS (9)
  - Onychoclasis [Unknown]
  - Hyperhidrosis [Unknown]
  - Hair growth abnormal [Not Recovered/Not Resolved]
  - Pain [Not Recovered/Not Resolved]
  - Skin fissures [Unknown]
  - Arthralgia [Not Recovered/Not Resolved]
  - Asthenia [Not Recovered/Not Resolved]
  - Breast pain [Unknown]
  - Nail disorder [Not Recovered/Not Resolved]
